FAERS Safety Report 19104412 (Version 3)
Quarter: 2021Q2

REPORT INFORMATION
  Report Type: Spontaneous
  Country: US (occurrence: US)
  Receive Date: 20210408
  Receipt Date: 20210603
  Transmission Date: 20210717
  Serious: No
  Sender: FDA-Public Use
  Company Number: US-SA-2021SA111636

PATIENT
  Age: 39 Year
  Sex: Female

DRUGS (3)
  1. KEVZARA [Suspect]
     Active Substance: SARILUMAB
     Indication: RHEUMATOID ARTHRITIS
     Dosage: 200 MG, QOW
     Route: 058
     Dates: start: 20210308, end: 20210526
  2. KEVZARA [Suspect]
     Active Substance: SARILUMAB
     Indication: DERMATITIS ATOPIC
  3. PEPCID [Concomitant]
     Active Substance: FAMOTIDINE

REACTIONS (4)
  - Injection site reaction [Unknown]
  - Product use in unapproved indication [Unknown]
  - Rash [Unknown]
  - Rash vesicular [Unknown]

NARRATIVE: CASE EVENT DATE: 20210308
